FAERS Safety Report 6720019-5 (Version None)
Quarter: 2010Q2

REPORT INFORMATION
  Report Type: 
  Country: None (occurrence: None)
  Receive Date: 20100507
  Receipt Date: 20100427
  Transmission Date: 20101027
  Serious: Yes (Other)
  Sender: FDA-Public Use
  Company Number: 020747005A

PATIENT
  Age: 46 Year
  Sex: Female

DRUGS (1)
  1. PERIOGARD [Suspect]
     Indication: GINGIVITIS
     Dosage: NI/2 TIMES A DAY/ORAL
     Route: 048

REACTIONS (3)
  - AGEUSIA [None]
  - DYSGEUSIA [None]
  - TONGUE DISCOLOURATION [None]
